FAERS Safety Report 19714331 (Version 1)
Quarter: 2021Q3

REPORT INFORMATION
  Report Type: Spontaneous
  Country: XK (occurrence: XK)
  Receive Date: 20210818
  Receipt Date: 20210818
  Transmission Date: 20211014
  Serious: Yes (Disabling, Other)
  Sender: FDA-Public Use
  Company Number: None

PATIENT
  Age: 28 Year
  Sex: Female
  Weight: 55 kg

DRUGS (1)
  1. LEVONORGESTREL. [Suspect]
     Active Substance: LEVONORGESTREL
     Indication: CONTRACEPTION
     Dosage: ?          QUANTITY:1 TABLET(S);OTHER FREQUENCY:ONLY ONE;?
     Route: 048
     Dates: start: 20210730, end: 20210730

REACTIONS (6)
  - Menstrual disorder [None]
  - Abdominal pain [None]
  - Breast pain [None]
  - Intermenstrual bleeding [None]
  - Breast swelling [None]
  - Pain [None]

NARRATIVE: CASE EVENT DATE: 20210807
